FAERS Safety Report 4633399-1 (Version None)
Quarter: 2005Q2

REPORT INFORMATION
  Report Type: 
  Country: None (occurrence: None)
  Receive Date: 20050408
  Receipt Date: 20050405
  Transmission Date: 20051028
  Serious: No
  Sender: FDA-Public Use
  Company Number: A500121004/LB-04-004

PATIENT
  Sex: Male

DRUGS (3)
  1. LABETALOL, 200MG, AKORN [Suspect]
  2. NEOSTIGMINE [Suspect]
  3. GLYCOPYROLATE [Suspect]

REACTIONS (1)
  - CARDIAC ARREST [None]
